FAERS Safety Report 9856056 (Version 1)
Quarter: 2014Q1

REPORT INFORMATION
  Report Type: Spontaneous
  Country: CA (occurrence: CA)
  Receive Date: 20140130
  Receipt Date: 20140130
  Transmission Date: 20141002
  Serious: Yes (Death)
  Sender: FDA-Public Use
  Company Number: CA-009507513-1401CAN012672

PATIENT
  Age: 48 Year
  Sex: Male

DRUGS (6)
  1. CORRECTOL NOS [Suspect]
     Route: 065
  2. ACETAMINOPHEN (+) CODEINE [Suspect]
     Route: 048
  3. CLONAZEPAM [Suspect]
     Route: 065
  4. LORAZEPAM [Suspect]
     Route: 065
  5. MORPHINE [Suspect]
     Route: 065
  6. SERTRALINE HYDROCHLORIDE [Suspect]
     Route: 065

REACTIONS (6)
  - Arteriosclerosis [Fatal]
  - Bronchopneumonia [Fatal]
  - Drug interaction [Fatal]
  - Pulmonary oedema [Fatal]
  - Respiratory depression [Fatal]
  - Serotonin syndrome [Fatal]
